FAERS Safety Report 9780619 (Version 2)
Quarter: 2013Q4

REPORT INFORMATION
  Report Type: Report from Study
  Country: AU (occurrence: AU)
  Receive Date: 20131224
  Receipt Date: 20131224
  Transmission Date: 20140711
  Serious: Yes (Hospitalization)
  Sender: FDA-Public Use
  Company Number: AU-ROCHE-1311960

PATIENT
  Age: 83 Year
  Sex: Female
  Weight: 86 kg

DRUGS (12)
  1. METHOXY POLYETHYLENE GLYCOL-EPOETIN BETA [Suspect]
     Indication: NEPHROGENIC ANAEMIA
     Route: 058
     Dates: start: 20100331
  2. METHOXY POLYETHYLENE GLYCOL-EPOETIN BETA [Suspect]
     Route: 058
     Dates: start: 20131029
  3. WARFARIN [Concomitant]
     Route: 065
     Dates: start: 20110115
  4. DIGOXIN [Concomitant]
     Route: 065
     Dates: start: 19950630
  5. ATORVASTATIN [Concomitant]
     Route: 065
     Dates: start: 20030630
  6. THYROXINE [Concomitant]
     Route: 065
     Dates: start: 20020630
  7. SERETIDE [Concomitant]
     Dosage: 1000/100
     Route: 065
     Dates: start: 20030630
  8. FRUSEMIDE [Concomitant]
     Route: 065
     Dates: start: 20000630
  9. ESOMEPRAZOLE [Concomitant]
     Route: 065
     Dates: start: 20030630
  10. ALLOPURINOL [Concomitant]
     Route: 065
     Dates: start: 20030630
  11. GLICLAZIDE [Concomitant]
     Dosage: GLICLAZIDE MR
     Route: 065
     Dates: start: 20120110
  12. SPIRONOLACTONE [Concomitant]
     Route: 065
     Dates: start: 20110513

REACTIONS (1)
  - Pulmonary embolism [Recovered/Resolved]
